FAERS Safety Report 14502838 (Version 1)
Quarter: 2018Q1

REPORT INFORMATION
  Report Type: Report from Study
  Country: BE (occurrence: BE)
  Receive Date: 20180208
  Receipt Date: 20180208
  Transmission Date: 20180509
  Serious: Yes (Hospitalization)
  Sender: FDA-Public Use
  Company Number: BE-BIOGEN-2018BI00522060

PATIENT
  Age: 64 Year
  Sex: Male

DRUGS (1)
  1. TYSABRI [Suspect]
     Active Substance: NATALIZUMAB
     Indication: MULTIPLE SCLEROSIS
     Route: 065
     Dates: start: 20130530

REACTIONS (1)
  - Fall [Recovered/Resolved]

NARRATIVE: CASE EVENT DATE: 20171207
